FAERS Safety Report 10147029 (Version 1)
Quarter: 2014Q2

REPORT INFORMATION
  Report Type: Spontaneous
  Country: US (occurrence: None)
  Receive Date: 20140430
  Receipt Date: 20140430
  Transmission Date: 20141212
  Serious: Yes (Hospitalization)
  Sender: FDA-Public Use
  Company Number: None

PATIENT
  Age: 79 Year
  Sex: Male

DRUGS (3)
  1. WARFARIN [Suspect]
     Indication: ATRIAL FIBRILLATION
     Dosage: 2.5 MG ( M,F) 5 MG ( T, W, TH, SAT, SUN) DAILY PO
     Route: 048
     Dates: start: 20140120
  2. PANTOPRAZOLE [Concomitant]
  3. ASPIRIN [Concomitant]

REACTIONS (9)
  - Faeces discoloured [None]
  - Diarrhoea [None]
  - Vomiting [None]
  - Decreased appetite [None]
  - Fatigue [None]
  - Abdominal pain [None]
  - Gastrointestinal haemorrhage [None]
  - International normalised ratio increased [None]
  - Haemoglobin decreased [None]
